FAERS Safety Report 10875177 (Version 1)
Quarter: 2015Q1

REPORT INFORMATION
  Report Type: Report from Study
  Country: DE (occurrence: DE)
  Receive Date: 20150227
  Receipt Date: 20150227
  Transmission Date: 20150721
  Serious: Yes (Hospitalization)
  Sender: FDA-Public Use
  Company Number: DE-ABBVIE-15K-062-1350830-00

PATIENT
  Sex: Female
  Weight: 78 kg

DRUGS (5)
  1. HUMIRA [Suspect]
     Active Substance: ADALIMUMAB
     Indication: RHEUMATOID ARTHRITIS
     Route: 058
     Dates: start: 20091202, end: 201401
  2. METOPROLOL [Concomitant]
     Active Substance: METOPROLOL
     Indication: HYPERTENSION
     Route: 048
  3. HUMIRA [Suspect]
     Active Substance: ADALIMUMAB
     Route: 058
     Dates: start: 201404, end: 201410
  4. XARELTO [Concomitant]
     Active Substance: RIVAROXABAN
     Indication: TACHYARRHYTHMIA
     Route: 048
     Dates: start: 201205
  5. ALENDRONIC ACID [Concomitant]
     Active Substance: ALENDRONIC ACID
     Indication: OSTEOPOROSIS
     Route: 048
     Dates: start: 2011

REACTIONS (6)
  - Cholangitis infective [Recovered/Resolved]
  - Peritonitis [Recovered/Resolved]
  - Congenital absence of bile ducts [Recovered/Resolved]
  - Cholecystectomy [Recovered/Resolved]
  - Neutrophil count decreased [Unknown]
  - Blood glucose increased [Unknown]

NARRATIVE: CASE EVENT DATE: 20140115
